FAERS Safety Report 22219027 (Version 1)
Quarter: 2023Q2

REPORT INFORMATION
  Report Type: Spontaneous
  Country: US (occurrence: US)
  Receive Date: 20230417
  Receipt Date: 20230417
  Transmission Date: 20230721
  Serious: Yes (Other)
  Sender: FDA-Public Use
  Company Number: US-ORGANON-O2304USA001303

PATIENT
  Age: 16 Year
  Sex: Female
  Weight: 108.7 kg

DRUGS (1)
  1. NEXPLANON [Suspect]
     Active Substance: ETONOGESTREL
     Indication: Contraception
     Dosage: 1 IMPLANT IN HER LEFT ARM
     Route: 059
     Dates: start: 20220622

REACTIONS (4)
  - Device dislocation [Recovered/Resolved]
  - Weight increased [Unknown]
  - Implant site fibrosis [Unknown]
  - Device issue [Not Recovered/Not Resolved]

NARRATIVE: CASE EVENT DATE: 20220622
